FAERS Safety Report 22589089 (Version 2)
Quarter: 2023Q2

REPORT INFORMATION
  Report Type: Spontaneous
  Country: US (occurrence: US)
  Receive Date: 20230612
  Receipt Date: 20230626
  Transmission Date: 20230721
  Serious: Yes (Hospitalization, Other)
  Sender: FDA-Public Use
  Company Number: US-TEVA-2023-US-2895415

PATIENT
  Age: 27 Year
  Sex: Male

DRUGS (3)
  1. ESTRADIOL [Suspect]
     Active Substance: ESTRADIOL
     Indication: Transgender hormonal therapy
     Route: 065
  2. CYPROTERONE ACETATE [Suspect]
     Active Substance: CYPROTERONE ACETATE
     Indication: Transgender hormonal therapy
     Route: 065
  3. N-METHYLCYCLAZODONE [Suspect]
     Active Substance: N-METHYLCYCLAZODONE
     Indication: Attention deficit hyperactivity disorder
     Route: 065

REACTIONS (8)
  - Drug-induced liver injury [Unknown]
  - Haematemesis [Unknown]
  - Spontaneous bacterial peritonitis [Unknown]
  - Intestinal pseudo-obstruction [Unknown]
  - Renal tubular necrosis [Unknown]
  - Hepatic haemorrhage [Unknown]
  - Acute hepatic failure [Unknown]
  - Intentional product misuse [Unknown]
